FAERS Safety Report 19850345 (Version 3)
Quarter: 2021Q4

REPORT INFORMATION
  Report Type: Spontaneous
  Country: US (occurrence: US)
  Receive Date: 20210917
  Receipt Date: 20211215
  Transmission Date: 20220304
  Serious: No
  Sender: FDA-Public Use
  Company Number: NVSC2021US173613

PATIENT
  Sex: Female

DRUGS (1)
  1. ADAKVEO [Suspect]
     Active Substance: CRIZANLIZUMAB-TMCA
     Indication: Product used for unknown indication
     Route: 041

REACTIONS (6)
  - Pain [Unknown]
  - Scratch [Recovering/Resolving]
  - Traumatic haemorrhage [Unknown]
  - Fatigue [Unknown]
  - Pruritus [Recovering/Resolving]
  - Drug ineffective [Unknown]
